FAERS Safety Report 8523220-3 (Version None)
Quarter: 2012Q3

REPORT INFORMATION
  Report Type: 
  Country: None (occurrence: None)
  Receive Date: 20120720
  Receipt Date: 20120712
  Transmission Date: 20120928
  Serious: Yes (Hospitalization)
  Sender: FDA-Public Use
  Company Number: US-BAYER-2012-070904

PATIENT
  Age: 45 Year
  Sex: Female
  Weight: 58.957 kg

DRUGS (15)
  1. ARIXTRA [Concomitant]
  2. ATARAX [Concomitant]
  3. FEOSOL [Concomitant]
  4. SENNA-MINT WAF [Concomitant]
  5. PEPCID [Concomitant]
  6. COLACE [Concomitant]
  7. SEROQUEL [Concomitant]
     Dosage: 50 MG, DAILY
  8. NEURONTIN [Concomitant]
  9. ELAVIL [Concomitant]
     Dosage: 25 MG, DAILY
  10. LOPRESSOR [Concomitant]
  11. YAZ [Suspect]
     Indication: MENOMETRORRHAGIA
  12. TEMAZEPAM [Concomitant]
     Dosage: 50 MG, UNK
  13. TRAMADOL HYDROCHLORIDE [Concomitant]
  14. METOPROLOL SUCCINATE [Concomitant]
     Dosage: 50 MG TWICE A DAY
  15. NORCO [Concomitant]

REACTIONS (2)
  - PULMONARY EMBOLISM [None]
  - DEEP VEIN THROMBOSIS [None]
